FAERS Safety Report 5707376-3 (Version None)
Quarter: 2008Q2

REPORT INFORMATION
  Report Type: 
  Country: None (occurrence: None)
  Receive Date: 20080416
  Receipt Date: 20080411
  Transmission Date: 20081010
  Serious: Yes (Other)
  Sender: FDA-Public Use
  Company Number: DE-ASTRAZENECA-2008PK00760

PATIENT
  Age: 35 Year
  Sex: Female

DRUGS (4)
  1. SEROQUEL [Suspect]
     Route: 048
     Dates: start: 20040329
  2. ZOLOFT [Suspect]
     Route: 048
     Dates: start: 20041001
  3. REMERGIL [Concomitant]
     Route: 048
     Dates: start: 20040202, end: 20040316
  4. REMERGIL [Concomitant]
     Route: 048
     Dates: start: 20041001, end: 20050522

REACTIONS (1)
  - CONDUCTION DISORDER [None]
